FAERS Safety Report 16442348 (Version 1)
Quarter: 2019Q2

REPORT INFORMATION
  Report Type: Report from Study
  Country: None (occurrence: US)
  Receive Date: 20190617
  Receipt Date: 20190617
  Transmission Date: 20190711
  Serious: No
  Sender: FDA-Public Use
  Company Number: US-US WORLDMEDS, LLC-USW201904-000703

PATIENT
  Age: 56 Year
  Sex: Male

DRUGS (4)
  1. APOKYN [Suspect]
     Active Substance: APOMORPHINE HYDROCHLORIDE
     Indication: PARKINSON^S DISEASE
     Route: 058
     Dates: start: 20190405
  2. APOKYN [Suspect]
     Active Substance: APOMORPHINE HYDROCHLORIDE
     Route: 058
     Dates: start: 20190405, end: 20190408
  3. SINEMET [Concomitant]
     Active Substance: CARBIDOPA\LEVODOPA
  4. RYTARY [Concomitant]
     Active Substance: CARBIDOPA\LEVODOPA
     Indication: PARKINSON^S DISEASE

REACTIONS (5)
  - Dizziness [Recovered/Resolved]
  - Rash [Recovering/Resolving]
  - Somnolence [Recovered/Resolved]
  - Rash pruritic [Recovering/Resolving]
  - Yawning [Recovered/Resolved]

NARRATIVE: CASE EVENT DATE: 20190405
